FAERS Safety Report 4296987-0 (Version None)
Quarter: 2004Q1

REPORT INFORMATION
  Report Type: 
  Country: None (occurrence: None)
  Receive Date: 20040217
  Receipt Date: 20040209
  Transmission Date: 20041129
  Serious: Yes (Hospitalization)
  Sender: FDA-Public Use
  Company Number: FR-BRISTOL-MYERS SQUIBB COMPANY-12500864

PATIENT
  Age: 40 Year
  Sex: Male

DRUGS (2)
  1. MODECATE INJ [Suspect]
     Indication: SCHIZOPHRENIA
     Route: 030
     Dates: start: 19890101, end: 20040101
  2. HALDOL [Concomitant]
     Route: 048

REACTIONS (1)
  - CARDIAC ARREST [None]
